FAERS Safety Report 4527827-X (Version None)
Quarter: 2004Q4

REPORT INFORMATION
  Report Type: 
  Country: None (occurrence: None)
  Receive Date: 20041202
  Receipt Date: 20040917
  Transmission Date: 20050328
  Serious: No
  Sender: FDA-Public Use
  Company Number: 200420569BWH

PATIENT
  Age: 54 Year
  Sex: Male

DRUGS (1)
  1. LEVITRA [Suspect]
     Indication: DRUG EFFECT PROLONGED
     Dosage: 10 MG, QD, ORAL
     Route: 048
     Dates: start: 20040913

REACTIONS (1)
  - DRUG INEFFECTIVE [None]
